FAERS Safety Report 23873243 (Version 2)
Quarter: 2024Q2

REPORT INFORMATION
  Report Type: Spontaneous
  Country: CA (occurrence: CA)
  Receive Date: 20240520
  Receipt Date: 20240604
  Transmission Date: 20240715
  Serious: Yes (Other)
  Sender: FDA-Public Use
  Company Number: CA-MYLANLABS-2024M1044258

PATIENT
  Age: 58 Year
  Sex: Female

DRUGS (4)
  1. EFFEXOR [Interacting]
     Active Substance: VENLAFAXINE HYDROCHLORIDE
     Indication: Anxiety
     Dosage: 150 MILLIGRAM, QD, (ONCE A DAY)
     Route: 065
  2. EFFEXOR [Interacting]
     Active Substance: VENLAFAXINE HYDROCHLORIDE
     Indication: Depression
  3. IBUPROFEN [Interacting]
     Active Substance: IBUPROFEN
     Indication: Muscle relaxant therapy
     Dosage: UNK (DAILY)
     Route: 065
     Dates: start: 2000, end: 202402
  4. IBUPROFEN\METHOCARBAMOL [Concomitant]
     Active Substance: IBUPROFEN\METHOCARBAMOL
     Dosage: UNK, (DAILY)
     Route: 065
     Dates: start: 2000

REACTIONS (9)
  - Suicidal ideation [Unknown]
  - Scar [Unknown]
  - Blood blister [Not Recovered/Not Resolved]
  - Drug interaction [Unknown]
  - Haemorrhage [Unknown]
  - Hypertension [Unknown]
  - Weight increased [Not Recovered/Not Resolved]
  - Nausea [Not Recovered/Not Resolved]
  - Decreased appetite [Not Recovered/Not Resolved]
